FAERS Safety Report 13658148 (Version 1)
Quarter: 2017Q2

REPORT INFORMATION
  Report Type: Report from Study
  Country: US (occurrence: US)
  Receive Date: 20170616
  Receipt Date: 20170616
  Transmission Date: 20170830
  Serious: Yes (Death, Hospitalization)
  Sender: FDA-Public Use
  Company Number: US-TORRENT-00003083

PATIENT
  Age: 22 Year
  Sex: Female

DRUGS (5)
  1. OLANZAPINE. [Suspect]
     Active Substance: OLANZAPINE
  2. BUPROPION. [Suspect]
     Active Substance: BUPROPION
  3. DILTIAZEM. [Suspect]
     Active Substance: DILTIAZEM
  4. LORAZEPAM. [Suspect]
     Active Substance: LORAZEPAM
  5. OXYCODONE [Suspect]
     Active Substance: OXYCODONE

REACTIONS (2)
  - Toxicity to various agents [Fatal]
  - Completed suicide [Fatal]
